FAERS Safety Report 7285416-0 (Version None)
Quarter: 2011Q1

REPORT INFORMATION
  Report Type: 
  Country: None (occurrence: None)
  Receive Date: 20110210
  Receipt Date: 20101111
  Transmission Date: 20110831
  Serious: No
  Sender: FDA-Public Use
  Company Number: US-ABBOTT-10P-163-0684891-00

PATIENT
  Sex: Male
  Weight: 68.1 kg

DRUGS (2)
  1. NORVIR [Suspect]
     Indication: HIV INFECTION
     Dates: start: 20050101, end: 20101101
  2. NORVIR [Suspect]
     Indication: HIV INFECTION
     Dates: start: 20101101, end: 20101111

REACTIONS (6)
  - ABDOMINAL PAIN UPPER [None]
  - DIARRHOEA [None]
  - DIZZINESS [None]
  - ANXIETY [None]
  - DYSKINESIA [None]
  - NAUSEA [None]
